FAERS Safety Report 11339684 (Version 1)
Quarter: 2015Q3

REPORT INFORMATION
  Report Type: Spontaneous
  Country: DE (occurrence: None)
  Receive Date: 20150803
  Receipt Date: 20150803
  Transmission Date: 20151125
  Serious: Yes (Life-Threatening, Hospitalization)
  Sender: FDA-Public Use
  Company Number: CO-PL-DE-2015-150

PATIENT
  Age: 75 Year
  Sex: Male

DRUGS (14)
  1. TORASEMID (TORASEMIDE) [Concomitant]
     Active Substance: TORSEMIDE
  2. NOVAMINSULFON (METAMIZOLE SODIUM) [Concomitant]
     Active Substance: METAMIZOLE SODIUM
  3. SPIRONOLACTONE (SIPRONOLACTONE) [Concomitant]
  4. DEKRISTOL (COLECALCIFEROL) [Concomitant]
     Active Substance: CHOLECALCIFEROL
  5. RAMIPRIL. [Concomitant]
     Active Substance: RAMIPRIL
  6. HYDROXYCHLOROQUINE SULFATE (UNKNOWN) (HYDROXYCHLOROQUINE SULFATE) [Suspect]
     Active Substance: HYDROXYCHLOROQUINE SULFATE
     Indication: RHEUMATOID ARTHRITIS
     Route: 048
     Dates: start: 201409, end: 20150630
  7. ALLOPURINOL (ALLOPURINOL) [Suspect]
     Active Substance: ALLOPURINOL
     Indication: HYPERURICAEMIA
     Route: 048
     Dates: start: 201405, end: 20150630
  8. FALITHROM (PHENPROCOUMON) [Concomitant]
  9. FOLSAN (FOLIC ACID) [Concomitant]
     Active Substance: FOLIC ACID
  10. SIMVASTATIN. [Concomitant]
     Active Substance: SIMVASTATIN
  11. TILIDIN (NALOXONE HYDRCHLORIDE, TILIDINE HYDROCHLORIDE) [Concomitant]
  12. OMEPRAZOLE. [Concomitant]
     Active Substance: OMEPRAZOLE
  13. HYDROCHLOROTHIAZIDE/RAMIPRIL [Concomitant]
     Active Substance: HYDROCHLOROTHIAZIDE\RAMIPRIL
  14. METHOTREXATE SODIUM. [Suspect]
     Active Substance: METHOTREXATE SODIUM
     Indication: RHEUMATOID ARTHRITIS
     Route: 058
     Dates: start: 201409, end: 20150630

REACTIONS (1)
  - Myelodysplastic syndrome [None]

NARRATIVE: CASE EVENT DATE: 20150630
